FAERS Safety Report 7222638-9 (Version None)
Quarter: 2011Q1

REPORT INFORMATION
  Report Type: 
  Country: None (occurrence: None)
  Receive Date: 20110103
  Receipt Date: 20101220
  Transmission Date: 20110831
  Serious: Yes (Other)
  Sender: FDA-Public Use
  Company Number: 024082

PATIENT
  Age: 16 Year
  Sex: Male

DRUGS (5)
  1. VIMPAT [Suspect]
     Dosage: 200 MG BID, ORAL; 250 MG BID, ORAL; 150 MG BID, ORAL
     Route: 048
     Dates: start: 20100101, end: 20100101
  2. VIMPAT [Suspect]
     Dosage: 200 MG BID, ORAL; 250 MG BID, ORAL; 150 MG BID, ORAL
     Route: 048
     Dates: start: 20100101
  3. VIMPAT [Suspect]
     Dosage: 200 MG BID, ORAL; 250 MG BID, ORAL; 150 MG BID, ORAL
     Route: 048
     Dates: start: 20100101, end: 20100101
  4. TOPAMAX [Concomitant]
  5. TEGRETOL [Concomitant]

REACTIONS (2)
  - BALANCE DISORDER [None]
  - CONVULSION [None]
